FAERS Safety Report 8924793 (Version 2)
Quarter: 2013Q2

REPORT INFORMATION
  Report Type: Spontaneous
  Country: US (occurrence: US)
  Receive Date: 20121126
  Receipt Date: 20130523
  Transmission Date: 20140414
  Serious: No
  Sender: FDA-Public Use
  Company Number: US-PFIZER INC-2012292121

PATIENT
  Age: 72 Year
  Sex: Male
  Weight: 63.5 kg

DRUGS (3)
  1. GENOTROPIN [Suspect]
     Indication: HYPOPITUITARISM
     Dosage: 0.3 MG, 1X/DAY
  2. GENOTROPIN [Suspect]
     Dosage: 0.2 MG, 1X/DAY
  3. CORTEF [Concomitant]
     Indication: HYPOPITUITARISM
     Dosage: 20 MG, 2X/DAY

REACTIONS (1)
  - Blood growth hormone increased [Unknown]
